FAERS Safety Report 5153143-1 (Version None)
Quarter: 2006Q4

REPORT INFORMATION
  Report Type: 
  Country: None (occurrence: None)
  Receive Date: 20061117
  Receipt Date: 20061106
  Transmission Date: 20070319
  Serious: Yes (Hospitalization)
  Sender: FDA-Public Use
  Company Number: FR-GLAXOSMITHKLINE-B0446713A

PATIENT
  Age: 45 Year
  Sex: Female

DRUGS (3)
  1. AUGMENTIN '125' [Suspect]
     Indication: ERYSIPELAS
     Route: 065
     Dates: start: 20060325, end: 20060329
  2. CIRKAN [Concomitant]
     Indication: ERYSIPELAS
     Route: 065
     Dates: start: 20060325, end: 20060329
  3. EFFERALGAN [Concomitant]
     Route: 065
     Dates: start: 20060325, end: 20060329

REACTIONS (3)
  - PRURITUS [None]
  - RASH MACULO-PAPULAR [None]
  - TOXIC SKIN ERUPTION [None]
